FAERS Safety Report 9496922 (Version 3)
Quarter: 2014Q2

REPORT INFORMATION
  Report Type: Spontaneous
  Country: US (occurrence: US)
  Receive Date: 20130904
  Receipt Date: 20140617
  Transmission Date: 20141212
  Serious: Yes (Hospitalization, Disabling, Other)
  Sender: FDA-Public Use
  Company Number: US-BAYER-2013-104760

PATIENT
  Age: 27 Year
  Sex: Female
  Weight: 124.72 kg

DRUGS (3)
  1. MIRENA [Suspect]
     Indication: CONTRACEPTION
     Dosage: 20 MCG/24HR, CONT
     Route: 015
     Dates: start: 20091021, end: 20100528
  2. IBUPROFEN [Concomitant]
     Indication: PAIN
     Dosage: UNK
     Dates: start: 2001
  3. TRIAMCINOLONE [Concomitant]

REACTIONS (15)
  - Uterine perforation [None]
  - Major depression [None]
  - Peripheral nerve injury [None]
  - Rash generalised [None]
  - Device difficult to use [None]
  - Weight decreased [None]
  - Medical device pain [None]
  - Abdominal pain [None]
  - Device issue [None]
  - Infection [None]
  - Feelings of worthlessness [None]
  - Injury [None]
  - Anxiety [None]
  - Pain [None]
  - Device dislocation [None]
